FAERS Safety Report 15456312 (Version 10)
Quarter: 2021Q4

REPORT INFORMATION
  Report Type: Spontaneous
  Country: US (occurrence: US)
  Receive Date: 20181002
  Receipt Date: 20211210
  Transmission Date: 20220303
  Serious: Yes (Other)
  Sender: FDA-Public Use
  Company Number: US-PFIZER INC-2017282008

PATIENT
  Age: 44 Year
  Sex: Female
  Weight: 95 kg

DRUGS (4)
  1. RELPAX [Suspect]
     Active Substance: ELETRIPTAN HYDROBROMIDE
     Indication: Migraine
     Dosage: 40 MG, 2X/DAY
     Route: 048
     Dates: start: 200811
  2. RELPAX [Suspect]
     Active Substance: ELETRIPTAN HYDROBROMIDE
     Indication: Headache
     Dosage: 80 MG, 2X/DAY
     Route: 048
     Dates: start: 2009
  3. RELPAX [Suspect]
     Active Substance: ELETRIPTAN HYDROBROMIDE
     Indication: Arnold-Chiari malformation
     Dosage: 40 MG, AS NEEDED (ONE 40 MG TABLET DAILY PRN)
     Route: 048
  4. MAGNESIUM [Concomitant]
     Active Substance: MAGNESIUM
     Dosage: UNK

REACTIONS (10)
  - Tendon rupture [Not Recovered/Not Resolved]
  - Ankle fracture [Not Recovered/Not Resolved]
  - Ligament rupture [Not Recovered/Not Resolved]
  - Suicidal ideation [Unknown]
  - Eye pain [Unknown]
  - Neck pain [Unknown]
  - Loss of personal independence in daily activities [Unknown]
  - Gait inability [Unknown]
  - Pain [Unknown]
  - Prescribed overdose [Unknown]

NARRATIVE: CASE EVENT DATE: 20090101
